FAERS Safety Report 9686270 (Version 1)
Quarter: 2013Q4

REPORT INFORMATION
  Report Type: Spontaneous
  Country: CN (occurrence: CN)
  Receive Date: 20131113
  Receipt Date: 20131113
  Transmission Date: 20140711
  Serious: Yes (Other)
  Sender: FDA-Public Use
  Company Number: PHHY2013CN127010

PATIENT
  Age: 42 Year
  Sex: Male

DRUGS (1)
  1. PIPERACILLIN+TAZOBACTAM [Suspect]
     Indication: INFECTION
     Dosage: 1 DF, Q8H
     Route: 042

REACTIONS (10)
  - Bone marrow failure [Recovered/Resolved]
  - Pyrexia [Recovered/Resolved]
  - Chills [Recovered/Resolved]
  - Viral upper respiratory tract infection [Unknown]
  - Neck pain [Unknown]
  - Chest pain [Unknown]
  - Hepatic function abnormal [Recovered/Resolved]
  - Agranulocytosis [Recovered/Resolved]
  - Thrombocytopenia [Recovered/Resolved]
  - Rash [Unknown]
